FAERS Safety Report 9919231 (Version 1)
Quarter: 2014Q1

REPORT INFORMATION
  Report Type: Spontaneous
  Country: CH (occurrence: CH)
  Receive Date: 20140224
  Receipt Date: 20140224
  Transmission Date: 20141002
  Serious: Yes (Life-Threatening, Hospitalization)
  Sender: FDA-Public Use
  Company Number: CH-JNJFOC-20140209460

PATIENT
  Age: 20 Year
  Sex: Male
  Weight: 77 kg

DRUGS (4)
  1. HALDOL [Suspect]
     Indication: SCHIZOPHRENIA, CATATONIC TYPE
     Route: 048
  2. HALDOL [Suspect]
     Indication: SCHIZOPHRENIA, CATATONIC TYPE
     Route: 048
     Dates: start: 20140203
  3. RISPERDAL [Suspect]
     Indication: SCHIZOPHRENIA, CATATONIC TYPE
     Route: 048
     Dates: start: 201401
  4. RISPERDAL [Suspect]
     Indication: SCHIZOPHRENIA, CATATONIC TYPE
     Route: 048
     Dates: start: 201401

REACTIONS (8)
  - Parkinsonism [Recovering/Resolving]
  - Drug administration error [Recovered/Resolved]
  - Salivary hypersecretion [Unknown]
  - Dysphagia [Unknown]
  - Mutism [Unknown]
  - Sluggishness [Unknown]
  - Decreased appetite [Unknown]
  - Urinary incontinence [Unknown]
